FAERS Safety Report 19424765 (Version 1)
Quarter: 2021Q2

REPORT INFORMATION
  Report Type: Spontaneous
  Country: US (occurrence: US)
  Receive Date: 20210616
  Receipt Date: 20210616
  Transmission Date: 20210717
  Serious: No
  Sender: FDA-Public Use
  Company Number: US-SK LIFE SCIENCE, INC-SKPVG-2020-000597

PATIENT

DRUGS (13)
  1. XCOPRI [Suspect]
     Active Substance: CENOBAMATE
     Indication: EPILEPSY
     Dosage: 25 MILLIGRAM, AT NIGHT  FOR 2 WEEKS
     Route: 048
  2. XCOPRI [Suspect]
     Active Substance: CENOBAMATE
     Dosage: UNK
     Route: 048
     Dates: start: 202010
  3. EPIDIOLEX [Suspect]
     Active Substance: CANNABIDIOL
     Indication: PRODUCT USED FOR UNKNOWN INDICATION
     Dosage: 2.5 ML IN AM AND 2.5 ML AT NIGHT
     Route: 065
  4. DILANTIN [Suspect]
     Active Substance: PHENYTOIN
     Indication: PRODUCT USED FOR UNKNOWN INDICATION
     Dosage: 550 MILLIGRAM
     Route: 065
  5. XCOPRI [Suspect]
     Active Substance: CENOBAMATE
     Dosage: 100 MILLIGRAM, QHS AT NIGHT, FOR 2 WEEKS
     Route: 048
  6. ONFI [Suspect]
     Active Substance: CLOBAZAM
     Indication: PRODUCT USED FOR UNKNOWN INDICATION
     Dosage: 20 MILLIGRAM AT NIGHT
     Route: 065
  7. BRIVIACT [Suspect]
     Active Substance: BRIVARACETAM
     Indication: PRODUCT USED FOR UNKNOWN INDICATION
     Dosage: 50 MILLIGRAM IN MORNING
     Route: 065
  8. LEXAPRO [Suspect]
     Active Substance: ESCITALOPRAM OXALATE
     Indication: DEPRESSION
     Dosage: 20 MILLIGRAM, QD
     Route: 065
  9. XCOPRI [Suspect]
     Active Substance: CENOBAMATE
     Indication: SEIZURE
     Dosage: 12.5 MILLIGRAM, AT NIGHT FOR 2 WEEKS
     Route: 048
     Dates: start: 202009
  10. XCOPRI [Suspect]
     Active Substance: CENOBAMATE
     Dosage: 150 MILLIGRAM, ONCE NIGHTLY, FOR 2 WEEKS
     Route: 048
  11. XCOPRI [Suspect]
     Active Substance: CENOBAMATE
     Dosage: 200 MILLIGRAM, QHS, EVERY NIGHT
     Route: 048
  12. DILANTIN [Suspect]
     Active Substance: PHENYTOIN
     Dosage: 250 MILLIGRAM
     Route: 065
  13. DILANTIN [Suspect]
     Active Substance: PHENYTOIN
     Dosage: 200 MILLIGRAM, BID
     Route: 065

REACTIONS (8)
  - Staring [Recovered/Resolved]
  - Gait disturbance [Recovered/Resolved]
  - Drug level increased [Unknown]
  - Sedation [Recovered/Resolved]
  - Drug interaction [Recovered/Resolved]
  - Hypersomnia [Recovering/Resolving]
  - Fatigue [Recovered/Resolved]
  - Dysphemia [Recovered/Resolved]

NARRATIVE: CASE EVENT DATE: 202009
